FAERS Safety Report 24324628 (Version 3)
Quarter: 2024Q4

REPORT INFORMATION
  Report Type: Report from Study
  Country: US (occurrence: US)
  Receive Date: 20240916
  Receipt Date: 20241118
  Transmission Date: 20250114
  Serious: Yes (Congenital Anomaly, Other)
  Sender: MYLAN
  Company Number: US-MYLANLABS-2024M1083352

PATIENT
  Sex: Female
  Weight: 3.1 kg

DRUGS (5)
  1. DOLUTEGRAVIR [Suspect]
     Active Substance: DOLUTEGRAVIR
     Indication: HIV infection
     Dosage: 1 DOSAGE FORM
     Route: 064
     Dates: start: 20231017
  2. RETROVIR [Suspect]
     Active Substance: ZIDOVUDINE
     Indication: HIV infection
     Dosage: UNK, (2 MG/KG/HR)
     Route: 064
     Dates: start: 20240522, end: 20240522
  3. RETROVIR [Suspect]
     Active Substance: ZIDOVUDINE
     Dosage: UNK, (1 MG/KG/HR)
     Route: 064
     Dates: start: 20240522, end: 20240522
  4. BIKTARVY [Suspect]
     Active Substance: BICTEGRAVIR SODIUM\EMTRICITABINE\TENOFOVIR ALAFENAMIDE FUMARATE
     Indication: HIV infection
     Dosage: 1 DOSAGE FORM
     Route: 064
     Dates: end: 20231017
  5. EMTRICITABINE\TENOFOVIR [Suspect]
     Active Substance: EMTRICITABINE\TENOFOVIR
     Indication: HIV infection
     Dosage: 1 DOSAGE FORM
     Route: 064
     Dates: start: 20231017

REACTIONS (3)
  - Exomphalos [Unknown]
  - Congenital pulmonary hypertension [Unknown]
  - Foetal exposure during pregnancy [Recovered/Resolved]
